FAERS Safety Report 8870941 (Version 1)
Quarter: 2012Q4

REPORT INFORMATION
  Report Type: Spontaneous
  Country: US (occurrence: None)
  Receive Date: 20121025
  Receipt Date: 20121025
  Transmission Date: 20130627
  Serious: Yes (Hospitalization)
  Sender: FDA-Public Use
  Company Number: IBUP20120005

PATIENT
  Age: 16 Year
  Sex: Female

DRUGS (1)
  1. IBUPROFEN [Suspect]
     Indication: SUICIDE ATTEMPT
     Dosage: 60 to 70 G, 300 to 350 TABLET AT ONCE, Oral
     Route: 048

REACTIONS (8)
  - Suicide attempt [None]
  - Loss of consciousness [None]
  - Vomiting [None]
  - Hypotension [None]
  - Drug level increased [None]
  - Heart rate increased [None]
  - Blood lactic acid increased [None]
  - Incorrect dose administered [None]
